FAERS Safety Report 6610831-5 (Version None)
Quarter: 2010Q1

REPORT INFORMATION
  Report Type: 
  Country: None (occurrence: None)
  Receive Date: 20100219
  Receipt Date: 20100115
  Transmission Date: 20100710
  Serious: Yes (Hospitalization, Other)
  Sender: FDA-Public Use
  Company Number: MIN-00531

PATIENT
  Age: 38 Year
  Sex: Male

DRUGS (6)
  1. MINOCYNE (MINOCYCLINE) [Suspect]
     Indication: CEREBRAL TOXOPLASMOSIS
     Dosage: 200 MG ONCE A DAY
     Dates: start: 20060301
  2. DAPSONE [Suspect]
     Indication: ANTIFUNGAL PROPHYLAXIS
     Dosage: 50 MG PER DAY
     Dates: start: 20060301, end: 20080101
  3. PYRIMETHAMINE TAB [Suspect]
     Indication: DISEASE RECURRENCE
     Dosage: 100 MG
     Dates: start: 20080101, end: 20080101
  4. ZECLAR [Concomitant]
  5. TRUVADA [Concomitant]
  6. KALETRA [Concomitant]

REACTIONS (9)
  - ANTIBIOTIC LEVEL BELOW THERAPEUTIC [None]
  - CEREBRAL TOXOPLASMOSIS [None]
  - CONFUSIONAL STATE [None]
  - CONTUSION [None]
  - DISEASE RECURRENCE [None]
  - DRUG INTERACTION [None]
  - PARTIAL SEIZURES [None]
  - PYREXIA [None]
  - RASH [None]
